FAERS Safety Report 19153525 (Version 1)
Quarter: 2021Q2

REPORT INFORMATION
  Report Type: Spontaneous
  Country: US (occurrence: US)
  Receive Date: 20210419
  Receipt Date: 20210419
  Transmission Date: 20210717
  Serious: No
  Sender: FDA-Public Use
  Company Number: US-KVK-TECH, INC-20210200024

PATIENT

DRUGS (1)
  1. PHENTERMINE HYDROCHLORIDE TABLETS, USP [Suspect]
     Active Substance: PHENTERMINE HYDROCHLORIDE
     Indication: WEIGHT DECREASED
     Dosage: 37.5 MILLIGRAM,1 TABLET IN A DAY
     Route: 048
     Dates: start: 202102

REACTIONS (3)
  - Drug ineffective [Unknown]
  - Asthenia [Unknown]
  - Fatigue [Unknown]

NARRATIVE: CASE EVENT DATE: 202102
